FAERS Safety Report 9468214 (Version 3)
Quarter: 2013Q4

REPORT INFORMATION
  Report Type: Spontaneous
  Country: FR (occurrence: None)
  Receive Date: 20130816
  Receipt Date: 20131016
  Transmission Date: 20140711
  Serious: Yes (Death, Hospitalization)
  Sender: FDA-Public Use
  Company Number: ACO_37859_2013

PATIENT
  Age: 62 Year
  Sex: Female
  Weight: 48 kg

DRUGS (6)
  1. FAMPYRA [Suspect]
     Indication: MULTIPLE SCLEROSIS
     Route: 048
     Dates: start: 20130404, end: 20130423
  2. HYDROCORTISONE [Concomitant]
  3. ESOMEPRAZOLE [Concomitant]
  4. OXYBUTYNIN CHLORIDE [Concomitant]
  5. NORDAZEPAM [Concomitant]
  6. DULOXETINE [Concomitant]

REACTIONS (5)
  - Myocardial infarction [None]
  - Cardiogenic shock [None]
  - Ileus paralytic [None]
  - Haemorrhage [None]
  - Cardiac ventricular thrombosis [None]
